FAERS Safety Report 14832708 (Version 3)
Quarter: 2022Q4

REPORT INFORMATION
  Report Type: Spontaneous
  Country: US (occurrence: US)
  Receive Date: 20180501
  Receipt Date: 20221018
  Transmission Date: 20230113
  Serious: No
  Sender: FDA-Public Use
  Company Number: US-BIOGENIDEC-2015BI147861

PATIENT
  Age: 52 Year
  Sex: Female

DRUGS (2)
  1. PLEGRIDY [Suspect]
     Active Substance: PEGINTERFERON BETA-1A
     Indication: Multiple sclerosis
     Route: 050
     Dates: start: 20151017, end: 20151114
  2. PLEGRIDY [Suspect]
     Active Substance: PEGINTERFERON BETA-1A
     Route: 050
     Dates: start: 20151018, end: 20151114

REACTIONS (8)
  - Drug ineffective [Not Recovered/Not Resolved]
  - Cognitive disorder [Not Recovered/Not Resolved]
  - Abdominal discomfort [Recovered/Resolved]
  - Muscle spasms [Recovered/Resolved]
  - Hyperreflexia [Recovered/Resolved]
  - Joint stiffness [Recovered/Resolved]
  - Musculoskeletal disorder [Recovered/Resolved]
  - Headache [Recovered/Resolved]

NARRATIVE: CASE EVENT DATE: 20151001
